FAERS Safety Report 8584769-0 (Version None)
Quarter: 2012Q3

REPORT INFORMATION
  Report Type: 
  Country: None (occurrence: None)
  Receive Date: 20120810
  Receipt Date: 20120802
  Transmission Date: 20120928
  Serious: Yes (Hospitalization)
  Sender: FDA-Public Use
  Company Number: US-BAYER-2012-073865

PATIENT
  Age: 33 Year
  Sex: Female
  Weight: 113.38 kg

DRUGS (7)
  1. YASMIN [Suspect]
     Indication: PREMENSTRUAL SYNDROME
     Dosage: UNK
     Dates: start: 20010101, end: 20020501
  2. ZITHROMAX [Concomitant]
  3. MIDRIN [Concomitant]
  4. COMBIVENT [Concomitant]
  5. MOTRIN [Concomitant]
  6. NSAID'S [Concomitant]
  7. CLARITIN [Concomitant]

REACTIONS (13)
  - EMOTIONAL DISTRESS [None]
  - LIMB DISCOMFORT [None]
  - INJURY [None]
  - MENSTRUATION IRREGULAR [None]
  - SYNCOPE [None]
  - PAIN [None]
  - PULMONARY EMBOLISM [None]
  - PULMONARY INFARCTION [None]
  - OEDEMA PERIPHERAL [None]
  - GENERAL PHYSICAL HEALTH DETERIORATION [None]
  - ANXIETY [None]
  - DEEP VEIN THROMBOSIS [None]
  - MUSCLE TIGHTNESS [None]
